FAERS Safety Report 7897611-8 (Version None)
Quarter: 2011Q4

REPORT INFORMATION
  Report Type: 
  Country: None (occurrence: None)
  Receive Date: 20111103
  Receipt Date: 20111021
  Transmission Date: 20120403
  Serious: Yes (Other)
  Sender: FDA-Public Use
  Company Number: TPA2011A06884

PATIENT
  Age: 68 Year
  Sex: Male
  Weight: 86.1834 kg

DRUGS (13)
  1. LASIX [Concomitant]
  2. KLOR-CON [Concomitant]
  3. SIMCOR (SIMVASTATIN) [Concomitant]
  4. ACTOS [Suspect]
     Indication: TYPE 2 DIABETES MELLITUS
     Dosage: 45 MG-1/2 TABLET, 1 IN 1 D
     Dates: start: 20090731, end: 20110822
  5. INSULIN PUMP (INSULIN) [Concomitant]
  6. COREG [Concomitant]
  7. FISH OIL (FISH OIL) [Concomitant]
  8. ANDROGEL [Concomitant]
  9. VITAMIN D [Concomitant]
  10. NOVOLOG [Concomitant]
  11. KOMBIGLYZE (ALL OTHER THERAPEUTIC PRODUCTS) [Concomitant]
  12. LISINOPRIL [Concomitant]
  13. PLAVIX [Concomitant]

REACTIONS (1)
  - TRANSITIONAL CELL CARCINOMA [None]
